FAERS Safety Report 5917336-5 (Version None)
Quarter: 2008Q4

REPORT INFORMATION
  Report Type: 
  Country: None (occurrence: None)
  Receive Date: 20081014
  Receipt Date: 20080929
  Transmission Date: 20090506
  Serious: Yes (Hospitalization, Other)
  Sender: FDA-Public Use
  Company Number: US-AMGEN-US310373

PATIENT
  Sex: Female

DRUGS (10)
  1. EPOGEN [Suspect]
     Indication: DIALYSIS
     Route: 058
  2. DARVOCET-N 100 [Concomitant]
  3. PHOSLO [Concomitant]
  4. RENAGEL [Concomitant]
  5. METOPROLOL TARTRATE [Concomitant]
  6. COLACE [Concomitant]
  7. SYNTHROID [Concomitant]
  8. TYLENOL (CAPLET) [Concomitant]
  9. RENALTABS [Concomitant]
  10. IRON [Concomitant]

REACTIONS (4)
  - HAEMOGLOBIN DECREASED [None]
  - HYSTERECTOMY [None]
  - KIDNEY TRANSPLANT REJECTION [None]
  - POSTOPERATIVE WOUND INFECTION [None]
